FAERS Safety Report 4645845-8 (Version None)
Quarter: 2005Q2

REPORT INFORMATION
  Report Type: 
  Country: None (occurrence: None)
  Receive Date: 20050425
  Receipt Date: 20050411
  Transmission Date: 20051028
  Serious: Yes (Life-Threatening, Hospitalization, Disabling)
  Sender: FDA-Public Use
  Company Number: 8009385

PATIENT
  Age: 15 Year
  Sex: Female

DRUGS (2)
  1. KEPPRA [Suspect]
     Indication: TEMPORAL LOBE EPILEPSY
     Dosage: 500 MG 3/D PO
     Route: 048
     Dates: start: 20040301
  2. TRILEPTAL [Suspect]
     Indication: TEMPORAL LOBE EPILEPSY
     Dosage: 1200 MG /D PO
     Route: 048
     Dates: start: 20011001

REACTIONS (2)
  - DYSTONIA [None]
  - MYASTHENIA GRAVIS [None]
